FAERS Safety Report 6179776-1 (Version None)
Quarter: 2009Q2

REPORT INFORMATION
  Report Type: 
  Country: None (occurrence: None)
  Receive Date: 20090505
  Receipt Date: 20090417
  Transmission Date: 20091009
  Serious: Yes (Life-Threatening, Other)
  Sender: FDA-Public Use
  Company Number: US-PFIZER INC-2009200283

PATIENT
  Age: 30 Month
  Sex: Female

DRUGS (1)
  1. ZIPRASIDONE HCL [Suspect]

REACTIONS (9)
  - ACCIDENTAL OVERDOSE [None]
  - BLOOD CREATININE DECREASED [None]
  - BREATH SOUNDS ABNORMAL [None]
  - COMA [None]
  - HYPOREFLEXIA [None]
  - MIOSIS [None]
  - PUPILLARY REFLEX IMPAIRED [None]
  - RESPIRATORY RATE INCREASED [None]
  - TACHYCARDIA [None]
